FAERS Safety Report 5303401-2 (Version None)
Quarter: 2007Q2

REPORT INFORMATION
  Report Type: 
  Country: None (occurrence: None)
  Receive Date: 20070420
  Receipt Date: 20070410
  Transmission Date: 20071010
  Serious: Yes (Other)
  Sender: FDA-Public Use
  Company Number: JP-ROCHE-491647

PATIENT
  Age: 4 Year
  Sex: Female
  Weight: 16 kg

DRUGS (5)
  1. TAMIFLU [Suspect]
     Dosage: FORM REPORTED AS DRY SYRUP.
     Route: 048
     Dates: start: 20070328, end: 20070401
  2. TAMIFLU [Suspect]
     Route: 048
     Dates: start: 20070402
  3. POLARAMINE [Concomitant]
     Route: 048
     Dates: start: 20070328
  4. ASTOMIN [Concomitant]
     Route: 048
     Dates: start: 20070328
  5. ASVERIN [Concomitant]
     Route: 048
     Dates: start: 20070328

REACTIONS (2)
  - COLD SWEAT [None]
  - TACHYPNOEA [None]
